FAERS Safety Report 4933054-4 (Version None)
Quarter: 2006Q1

REPORT INFORMATION
  Report Type: 
  Country: None (occurrence: None)
  Receive Date: 20060302
  Receipt Date: 20060302
  Transmission Date: 20060701
  Serious: Yes (Hospitalization)
  Sender: FDA-Public Use
  Company Number: None

PATIENT
  Sex: Male

DRUGS (10)
  1. DOXORUBICIN HCL [Suspect]
     Indication: B-CELL LYMPHOMA
  2. RITUXIMAB  600 MG [Suspect]
  3. VINCRISTINE [Concomitant]
  4. CYCLOPHOSPHAMIDE [Concomitant]
  5. METHOTREXATE [Concomitant]
  6. RITUXIMAB [Concomitant]
  7. CYTARABINE [Concomitant]
  8. IFOSFAMIDE [Concomitant]
  9. MESNA [Concomitant]
  10. ETOPOSIDE [Concomitant]

REACTIONS (7)
  - ATELECTASIS [None]
  - BACTERAEMIA [None]
  - HYPOXIA [None]
  - MEDICAL DEVICE COMPLICATION [None]
  - NEUTROPENIA [None]
  - PLEURAL EFFUSION [None]
  - STAPHYLOCOCCAL INFECTION [None]
